FAERS Safety Report 8105076-6 (Version None)
Quarter: 2012Q1

REPORT INFORMATION
  Report Type: 
  Country: None (occurrence: None)
  Receive Date: 20120130
  Receipt Date: 20120116
  Transmission Date: 20120608
  Serious: Yes (Life-Threatening)
  Sender: FDA-Public Use
  Company Number: 1167680

PATIENT
  Age: 33 Year
  Sex: Female

DRUGS (2)
  1. CARBOPLATIN [Suspect]
     Indication: MESOTHELIOMA
     Dosage: 370 MG MILLIGRAM(S), INTRAVENOUS (NOT OTHERWISE SPECIFIED)
     Route: 042
     Dates: start: 20120112, end: 20120112
  2. GEMCITABINE [Concomitant]

REACTIONS (5)
  - DYSPNOEA [None]
  - OXYGEN SATURATION DECREASED [None]
  - URTICARIA [None]
  - FACE OEDEMA [None]
  - HYPOTENSION [None]
